FAERS Safety Report 6506687-1 (Version None)
Quarter: 2009Q4

REPORT INFORMATION
  Report Type: 
  Country: None (occurrence: None)
  Receive Date: 20091221
  Receipt Date: 20091124
  Transmission Date: 20100525
  Serious: No
  Sender: FDA-Public Use
  Company Number: US-ROCHE-671093

PATIENT
  Age: 3 Year
  Sex: Female
  Weight: 9.5 kg

DRUGS (1)
  1. TAMIFLU [Suspect]
     Indication: INFLUENZA
     Dosage: STRENGTH: 15MG/ML
     Route: 048
     Dates: start: 20091123

REACTIONS (2)
  - CHOKING [None]
  - DRUG DOSE OMISSION [None]
